FAERS Safety Report 21963994 (Version 1)
Quarter: 2023Q1

REPORT INFORMATION
  Report Type: Spontaneous
  Country: IT (occurrence: None)
  Receive Date: 20230207
  Receipt Date: 20230207
  Transmission Date: 20230417
  Serious: Yes (Other)
  Sender: FDA-Public Use
  Company Number: 2023A024689

PATIENT
  Age: 84 Year
  Sex: Male

DRUGS (7)
  1. QUETIAPINE [Suspect]
     Active Substance: QUETIAPINE
     Dosage: DOSAGE: 25 UNIT OF MEASUREMENT: MILLIGRAMS FREQUENCY OF ADMINISTRATION: TOTAL ROUTE OF ADMINISTRA...
     Route: 048
     Dates: start: 20220406, end: 20220406
  2. TORSEMIDE [Concomitant]
     Active Substance: TORSEMIDE
  3. VALSARTAN [Concomitant]
     Active Substance: VALSARTAN
  4. OMEPRAZOLE [Concomitant]
     Active Substance: OMEPRAZOLE
  5. TAMSULOSIN HYDROCHLORIDE [Concomitant]
     Active Substance: TAMSULOSIN HYDROCHLORIDE
  6. SINEMET [Concomitant]
     Active Substance: CARBIDOPA\LEVODOPA
  7. PLAVIX [Concomitant]
     Active Substance: CLOPIDOGREL BISULFATE

REACTIONS (1)
  - Sopor [Recovering/Resolving]

NARRATIVE: CASE EVENT DATE: 20220406
